FAERS Safety Report 11776266 (Version 2)
Quarter: 2015Q4

REPORT INFORMATION
  Report Type: Spontaneous
  Country: TR (occurrence: TR)
  Receive Date: 20151125
  Receipt Date: 20151207
  Transmission Date: 20160304
  Serious: Yes (Hospitalization, Other)
  Sender: FDA-Public Use
  Company Number: PHHY2015TR150454

PATIENT
  Age: 38 Year
  Sex: Female

DRUGS (11)
  1. DRAMAMINE [Concomitant]
     Active Substance: DIMENHYDRINATE
     Indication: PRODUCT USED FOR UNKNOWN INDICATION
     Dosage: 1 DF, TID (ONE IN THE MORNING, ONE AT NOON AND ONE IN THE EVENING)
     Route: 048
  2. TIROMEL [Concomitant]
     Indication: THYROID DISORDER
     Dosage: 0.5 DF, QD
     Route: 048
  3. BETASERC [Concomitant]
     Active Substance: BETAHISTINE
     Indication: DIZZINESS
     Dosage: 1 DF, TID (ONE IN THE MORNING, ONE AT NOON AND ONE IN THE EVENING)
     Route: 048
  4. TEGRETOL [Suspect]
     Active Substance: CARBAMAZEPINE
     Indication: EPILEPSY
     Dosage: 3 DF, QD (ONE AND HALF TABLETS IN THE MORNING AND ONE AND HALF TABLETS IN THE EVENING)
     Route: 048
     Dates: start: 19900101
  5. TEGRETOL [Suspect]
     Active Substance: CARBAMAZEPINE
     Dosage: 2.5 DF, QD (ONE TABLET IN THE MORNING, A HALF TABLET AT NOON AND ONE TABLET IN THE EVENING)
     Route: 048
  6. HELIPAC [Concomitant]
     Indication: GASTRIC ULCER
     Dosage: 1 DF, BID (ONE IN THE MORNING AND ONE IN THE EVENING FOR EACH DRUG)
     Route: 048
  7. MATOFIN [Concomitant]
     Indication: PRODUCT USED FOR UNKNOWN INDICATION
     Dosage: 1000 MG, QD
     Route: 048
  8. FOLBIOL [Concomitant]
     Active Substance: FOLIC ACID
     Indication: PRODUCT USED FOR UNKNOWN INDICATION
     Dosage: 1 DF, BID (ONE IN THE MORNING AND ONE IN THE EVENING)
     Route: 048
  9. DEPAKENE [Concomitant]
     Active Substance: VALPROIC ACID
     Indication: PRODUCT USED FOR UNKNOWN INDICATION
     Dosage: 1.5 DF, BID
     Route: 048
  10. DIAZOMID [Concomitant]
     Indication: PRODUCT USED FOR UNKNOWN INDICATION
     Dosage: 1 DF, TID (ONE IN THE MORNING, ONE AT NOON AND ONE IN THE EVENING)
     Route: 048
  11. EUTHYROX [Concomitant]
     Active Substance: LEVOTHYROXINE SODIUM
     Indication: PRODUCT USED FOR UNKNOWN INDICATION
     Dosage: 1 DF, QD (IN THE MORNING)
     Route: 048

REACTIONS (13)
  - Toxicity to various agents [Recovered/Resolved]
  - Seizure [Recovered/Resolved]
  - Loss of consciousness [Recovered/Resolved]
  - Scar [Unknown]
  - Balance disorder [Unknown]
  - Vertigo [Unknown]
  - Fall [Not Recovered/Not Resolved]
  - Movement disorder [Not Recovered/Not Resolved]
  - Dysstasia [Not Recovered/Not Resolved]
  - Muscle contractions involuntary [Not Recovered/Not Resolved]
  - Wound [Unknown]
  - Vomiting [Unknown]
  - Vitamin B12 increased [Unknown]

NARRATIVE: CASE EVENT DATE: 20151116
